FAERS Safety Report 5744653-4 (Version None)
Quarter: 2008Q2

REPORT INFORMATION
  Report Type: 
  Country: None (occurrence: None)
  Receive Date: 20080520
  Receipt Date: 20080513
  Transmission Date: 20081010
  Serious: Yes (Other)
  Sender: FDA-Public Use
  Company Number: AU-ALLERGAN-0804465US

PATIENT
  Sex: Female

DRUGS (5)
  1. LUMIGAN [Suspect]
     Indication: GLAUCOMA
  2. ALPHAGAN [Suspect]
     Indication: DRUG USE FOR UNKNOWN INDICATION
  3. COSOPT [Concomitant]
     Indication: GLAUCOMA
     Dosage: UNK, QPM
  4. MADOPAR [Concomitant]
     Indication: PARKINSON'S DISEASE
     Dosage: UNK, QID
  5. RENITEC [Concomitant]
     Indication: HYPERTENSION

REACTIONS (2)
  - HYPOTENSION [None]
  - LOSS OF CONSCIOUSNESS [None]
